FAERS Safety Report 25073743 (Version 2)
Quarter: 2025Q1

REPORT INFORMATION
  Report Type: Report from Study
  Country: GB (occurrence: GB)
  Receive Date: 20250313
  Receipt Date: 20250321
  Transmission Date: 20250408
  Serious: Yes (Other)
  Sender: CELLTRION
  Company Number: GB-CELLTRION INC.-2025GB007149

PATIENT

DRUGS (1)
  1. INFLIXIMAB-DYYB [Suspect]
     Active Substance: INFLIXIMAB-DYYB
     Indication: Colitis ulcerative
     Dosage: 120MG PRE FILLED PEN, EVERY TWO WEEKS
     Route: 058
     Dates: start: 202412

REACTIONS (4)
  - Melaena [Unknown]
  - Fear [Unknown]
  - Injection site pain [Unknown]
  - Constipation [Unknown]
